FAERS Safety Report 18522713 (Version 1)
Quarter: 2020Q4

REPORT INFORMATION
  Report Type: Report from Study
  Country: None (occurrence: BR)
  Receive Date: 20201119
  Receipt Date: 20201119
  Transmission Date: 20210114
  Serious: Yes (Other)
  Sender: FDA-Public Use
  Company Number: BR-ABBVIE-20P-020-3575236-00

PATIENT
  Age: 58 Year
  Sex: Male
  Weight: 102 kg

DRUGS (9)
  1. HYDROCHLOROTHIAZIDE. [Concomitant]
     Active Substance: HYDROCHLOROTHIAZIDE
     Indication: DIURETIC THERAPY
     Dosage: ADMINISTERED IN THE MORNING
     Route: 048
     Dates: start: 2005
  2. APRESOLINA [Concomitant]
     Active Substance: HYDRALAZINE HYDROCHLORIDE
     Indication: HYPERTENSION
     Dosage: DD: 100MG; MORNING/NIGHT
     Route: 048
  3. INSULIN, REGULAR [Concomitant]
     Active Substance: INSULIN NOS
     Indication: PRODUCT USED FOR UNKNOWN INDICATION
  4. NPH INSULIN [Concomitant]
     Active Substance: INSULIN BEEF
     Indication: PRODUCT USED FOR UNKNOWN INDICATION
  5. CAPOTEN [Concomitant]
     Active Substance: CAPTOPRIL
     Indication: HYPERTENSION
     Dosage: ADMINISTERED IN THE MORNING IF BP IS HIGH
     Route: 060
  6. DEPAKOTE ER [Suspect]
     Active Substance: DIVALPROEX SODIUM
     Indication: SEIZURE
     Dosage: DD: 1000MG ADMINISTERED AFTER BREAKFAST
     Route: 048
     Dates: start: 2017
  7. NAPRIX [Concomitant]
     Active Substance: RAMIPRIL
     Indication: DYSURIA
     Dosage: STRENGTH: 10/5; ADMINISTERED IN THE MORNING
     Route: 048
     Dates: start: 2005
  8. ABLOK [Concomitant]
     Active Substance: ATENOLOL
     Indication: HYPERTENSION
     Dosage: DD: 100MG; ADMINISTERED MORNING/NIGHT; STARTED AFTER THE STROKE
     Route: 048
     Dates: start: 201907
  9. ALDACTONE [Concomitant]
     Active Substance: SPIRONOLACTONE
     Indication: HYPERTENSION
     Dosage: ADMINISTERED IN THE MORNING
     Route: 048

REACTIONS (2)
  - Cerebrovascular accident [Recovered/Resolved with Sequelae]
  - Visual impairment [Not Recovered/Not Resolved]

NARRATIVE: CASE EVENT DATE: 201907
